FAERS Safety Report 11210820 (Version 3)
Quarter: 2016Q2

REPORT INFORMATION
  Report Type: Spontaneous
  Country: US (occurrence: US)
  Receive Date: 20150622
  Receipt Date: 20160413
  Transmission Date: 20160815
  Serious: Yes (Other)
  Sender: FDA-Public Use
  Company Number: US-ASTRAZENECA-2014SE96244

PATIENT
  Age: 757 Month
  Sex: Female
  Weight: 102 kg

DRUGS (7)
  1. LIPITOR [Concomitant]
     Active Substance: ATORVASTATIN CALCIUM
     Route: 048
  2. ARMOUR THYROID [Concomitant]
     Active Substance: THYROID, PORCINE
     Route: 048
  3. VITAMIN D3 [Concomitant]
     Active Substance: CHOLECALCIFEROL
     Route: 048
  4. PROTONIX [Concomitant]
     Active Substance: PANTOPRAZOLE SODIUM
     Route: 048
  5. BYDUREON [Suspect]
     Active Substance: EXENATIDE
     Indication: DIABETES MELLITUS
     Route: 058
     Dates: start: 201302
  6. BENICAR [Concomitant]
     Active Substance: OLMESARTAN MEDOXOMIL
     Route: 048
  7. ALLEGRA [Concomitant]
     Active Substance: FEXOFENADINE HYDROCHLORIDE
     Route: 048

REACTIONS (12)
  - Blood glucose increased [Unknown]
  - Injection site scab [Recovered/Resolved]
  - Migraine with aura [Unknown]
  - Injection site bruising [Unknown]
  - Injection site haemorrhage [Unknown]
  - Device occlusion [Unknown]
  - Weight decreased [Unknown]
  - Injection site haematoma [Recovered/Resolved]
  - Diarrhoea [Not Recovered/Not Resolved]
  - Injection site extravasation [Unknown]
  - Underdose [Unknown]
  - Injection site pain [Recovered/Resolved]

NARRATIVE: CASE EVENT DATE: 201302
